FAERS Safety Report 13884017 (Version 2)
Quarter: 2017Q3

REPORT INFORMATION
  Report Type: Spontaneous
  Country: US (occurrence: US)
  Receive Date: 20170820
  Receipt Date: 20170907
  Transmission Date: 20171127
  Serious: Yes (Hospitalization)
  Sender: FDA-Public Use
  Company Number: US-BEH-2017082812

PATIENT
  Age: 22 Year
  Sex: Male

DRUGS (2)
  1. RIASTAP [Suspect]
     Active Substance: FIBRINOGEN HUMAN
     Indication: CONGENITAL COAGULOPATHY
     Dosage: 6000 IU, TWICE A WEEK
     Route: 042
     Dates: start: 20170426
  2. RIASTAP [Suspect]
     Active Substance: FIBRINOGEN HUMAN
     Indication: PROPHYLAXIS
     Dosage: 6000 IU, PRN
     Route: 042
     Dates: start: 20170426

REACTIONS (3)
  - Cerebrovascular accident [Unknown]
  - Cerebral haemorrhage [Unknown]
  - Myocardial haemorrhage [Unknown]

NARRATIVE: CASE EVENT DATE: 20170510
